FAERS Safety Report 23241611 (Version 2)
Quarter: 2024Q2

REPORT INFORMATION
  Report Type: Spontaneous
  Country: DE (occurrence: DE)
  Receive Date: 20231129
  Receipt Date: 20240408
  Transmission Date: 20240716
  Serious: Yes (Other)
  Sender: FDA-Public Use
  Company Number: DE-HIKMA PHARMACEUTICALS USA INC.-DE-H14001-23-66716

PATIENT
  Age: 20 Year
  Sex: Female

DRUGS (5)
  1. CISPLATIN [Suspect]
     Active Substance: CISPLATIN
     Indication: Adrenocortical carcinoma
     Dosage: UNK (AFTER BRACHYTHERAPY)
     Route: 065
  2. DOXORUBICIN [Suspect]
     Active Substance: DOXORUBICIN
     Indication: Adrenocortical carcinoma
     Dosage: UNK (AFTER BRACHYTHERAPY)
     Route: 065
  3. ETOPOSIDE [Suspect]
     Active Substance: ETOPOSIDE
     Indication: Adrenocortical carcinoma
     Dosage: UNK (AFTER BRACHYTHERAPY)
     Route: 065
  4. MITOTANE [Suspect]
     Active Substance: MITOTANE
     Indication: Adrenocortical carcinoma
     Dosage: UNK
     Route: 065
  5. FLUDROCORTISONE [Concomitant]
     Active Substance: FLUDROCORTISONE
     Indication: Hypoaldosteronism
     Dosage: UNK
     Route: 065

REACTIONS (3)
  - Disease progression [Unknown]
  - Drug ineffective [Unknown]
  - Autoimmune thyroiditis [Recovered/Resolved]
